FAERS Safety Report 16986230 (Version 3)
Quarter: 2020Q1

REPORT INFORMATION
  Report Type: Other
  Country: US (occurrence: US)
  Receive Date: 20191101
  Receipt Date: 20200109
  Transmission Date: 20200409
  Serious: Yes (Other)
  Sender: FDA-Public Use
  Company Number: US-INTERCEPT-PM2019001866

PATIENT
  Sex: Female

DRUGS (1)
  1. OCALIVA [Suspect]
     Active Substance: OBETICHOLIC ACID
     Indication: PRIMARY BILIARY CHOLANGITIS
     Dosage: 5 MG, QD
     Route: 048
     Dates: start: 2016

REACTIONS (11)
  - Scratch [Unknown]
  - Skin haemorrhage [Unknown]
  - Rash pruritic [Not Recovered/Not Resolved]
  - Product dose omission [Unknown]
  - Scar [Unknown]
  - Leukaemia [Recovered/Resolved]
  - Dry skin [Unknown]
  - Headache [Not Recovered/Not Resolved]
  - Hypersomnia [Unknown]
  - Pruritus [Not Recovered/Not Resolved]
  - Arthralgia [Not Recovered/Not Resolved]

NARRATIVE: CASE EVENT DATE: 2019
